FAERS Safety Report 9481887 (Version 6)
Quarter: 2013Q4

REPORT INFORMATION
  Report Type: Spontaneous
  Country: US (occurrence: US)
  Receive Date: 20130828
  Receipt Date: 20131021
  Transmission Date: 20140711
  Serious: Yes (Hospitalization, Other)
  Sender: FDA-Public Use
  Company Number: US-AMGEN-USASP2013059503

PATIENT
  Age: 62 Year
  Sex: Male
  Weight: 80.73 kg

DRUGS (25)
  1. ARANESP [Suspect]
     Indication: ANAEMIA
     Dosage: 200 MUG, Q2WK
     Route: 065
     Dates: start: 20121128
  2. ARANESP [Suspect]
     Dosage: 200 MUG, UNK
     Route: 065
     Dates: start: 20130715, end: 20130812
  3. FOSAMAX [Concomitant]
     Dosage: 70 MG, QWK
  4. ASPIRIN [Concomitant]
     Dosage: 81 MG, UNK
  5. VITAMIN B COMPLEX [Concomitant]
  6. CITRACAL + D                       /01438101/ [Concomitant]
     Dosage: UNK UNK, BID
  7. VITAMIN D3 [Concomitant]
     Dosage: UNK UNK, QD
  8. FOLVITE                            /00024201/ [Concomitant]
     Dosage: 1 MG, UNK
  9. NEURONTIN [Concomitant]
     Dosage: 200 MG, TID
  10. CARIMUNE NF [Concomitant]
     Route: 042
  11. NOVOLOG [Concomitant]
  12. PROBIOTIC COMPLEX [Concomitant]
     Dosage: UNK UNK, QD
  13. SYNTHROID [Concomitant]
     Dosage: 175 MUG, QD
  14. CLARITIN                           /00413701/ [Concomitant]
     Dosage: 10 MG, QD
  15. THERAGRAN                          /01824401/ [Concomitant]
     Dosage: UNK UNK, QD
  16. NITROSTAT [Concomitant]
     Dosage: 0.4 MG, AS NECESSARY
     Route: 060
  17. PRILOSEC                           /00661201/ [Concomitant]
     Dosage: 20 MG, QD
  18. DELTASONE                          /00044701/ [Concomitant]
     Dosage: 20 MG, UNK
  19. ZOCOR [Concomitant]
     Dosage: 20 MG, UNK
  20. AMBIEN [Concomitant]
     Dosage: 5 MG, AS NECESSARY
  21. METOPROLOL [Concomitant]
     Dosage: 50 MG, QD
  22. IMDUR [Concomitant]
     Dosage: 30 MG, QD
  23. ALEVE [Concomitant]
  24. COZAAR [Concomitant]
  25. CYCLOSPORINE [Concomitant]

REACTIONS (23)
  - Guillain-Barre syndrome [Not Recovered/Not Resolved]
  - Coombs negative haemolytic anaemia [Unknown]
  - Pancytopenia [Recovering/Resolving]
  - Aplasia pure red cell [Unknown]
  - Haemoglobin abnormal [Unknown]
  - Hypergammaglobulinaemia benign monoclonal [Unknown]
  - Methylenetetrahydrofolate reductase polymorphism [Unknown]
  - Pulmonary embolism [Unknown]
  - Nausea [Unknown]
  - Vomiting [Unknown]
  - Chest pain [Unknown]
  - Troponin increased [Unknown]
  - Drug ineffective [Unknown]
  - Normochromic normocytic anaemia [Unknown]
  - Neutrophil toxic granulation present [Unknown]
  - Thrombocytopenia [Unknown]
  - Bone marrow disorder [Unknown]
  - Anaemia [Unknown]
  - Arthralgia [Unknown]
  - Paraesthesia [Unknown]
  - Sensory level abnormal [Unknown]
  - Increased tendency to bruise [Unknown]
  - Pain in extremity [Unknown]
